FAERS Safety Report 9263558 (Version 1)
Quarter: 2013Q2

REPORT INFORMATION
  Report Type: Spontaneous
  Country: US (occurrence: None)
  Receive Date: 20130429
  Receipt Date: 20130429
  Transmission Date: 20140414
  Serious: No
  Sender: FDA-Public Use
  Company Number: None

PATIENT
  Age: 60 Year
  Sex: Female
  Weight: 76.2 kg

DRUGS (2)
  1. LEVAQUIN [Suspect]
     Indication: CHRONIC SINUSITIS
     Dosage: 300MG QD PO X 6MONTHS
     Route: 048
     Dates: start: 201107, end: 201202
  2. ORENCIA [Concomitant]

REACTIONS (1)
  - Tendon rupture [None]
